FAERS Safety Report 11389934 (Version 1)
Quarter: 2015Q3

REPORT INFORMATION
  Report Type: Spontaneous
  Country: US (occurrence: US)
  Receive Date: 20150818
  Receipt Date: 20150818
  Transmission Date: 20151125
  Serious: Yes (Other)
  Sender: FDA-Public Use
  Company Number: US-ROCHE-ITM201504IM014962

PATIENT
  Sex: Female
  Weight: 58.57 kg

DRUGS (3)
  1. ESBRIET [Suspect]
     Active Substance: PIRFENIDONE
     Indication: IDIOPATHIC PULMONARY FIBROSIS
     Dosage: 3 CAPS
     Route: 048
     Dates: start: 20150512
  2. TRACLEER [Concomitant]
     Active Substance: BOSENTAN
  3. ADEMPAS [Concomitant]
     Active Substance: RIOCIGUAT

REACTIONS (8)
  - Fatigue [Unknown]
  - Hypotension [Unknown]
  - Dizziness postural [Unknown]
  - Abasia [Unknown]
  - Dizziness [Unknown]
  - Gait disturbance [Unknown]
  - Agitation [Unknown]
  - Asthenia [Unknown]
